FAERS Safety Report 6127652-2 (Version None)
Quarter: 2009Q1

REPORT INFORMATION
  Report Type: 
  Country: None (occurrence: None)
  Receive Date: 20090323
  Receipt Date: 20090310
  Transmission Date: 20090719
  Serious: Yes (Other)
  Sender: FDA-Public Use
  Company Number: US-PFIZER INC-2006067562

PATIENT
  Sex: Female
  Weight: 61 kg

DRUGS (10)
  1. PROVERA [Suspect]
     Indication: HORMONE REPLACEMENT THERAPY
     Dosage: UNK
     Route: 048
     Dates: start: 19930101, end: 19950401
  2. MEDROXYPROGESTERONE AND MEDROXYPROGESTERONE ACETATE [Suspect]
     Indication: HORMONE REPLACEMENT THERAPY
     Dosage: UNK
     Route: 048
     Dates: start: 19871201, end: 19970101
  3. MEDROXYPROGESTERONE AND MEDROXYPROGESTERONE ACETATE [Suspect]
     Dosage: UNK
     Route: 048
     Dates: start: 19880201
  4. MEDROXYPROGESTERONE AND MEDROXYPROGESTERONE ACETATE [Suspect]
     Dosage: UNK
     Route: 048
     Dates: start: 19950501, end: 19960401
  5. PREMARIN [Suspect]
     Indication: HORMONE REPLACEMENT THERAPY
     Dosage: UNK
     Route: 065
     Dates: start: 19880101
  6. PREMARIN [Suspect]
     Dosage: UNK
     Dates: start: 19930101, end: 19960401
  7. ESTRATEST [Suspect]
     Indication: HORMONE REPLACEMENT THERAPY
     Dosage: UNK
     Route: 065
     Dates: start: 19880201
  8. LASIX [Concomitant]
     Indication: DIURETIC THERAPY
     Dosage: UNK
     Dates: start: 19800101
  9. KLOR-CON [Concomitant]
     Indication: BLOOD PRESSURE ABNORMAL
     Dosage: UNK
     Dates: start: 20000101
  10. ZOCOR [Concomitant]
     Indication: HYPERCHOLESTEROLAEMIA
     Dosage: UNK
     Dates: start: 19950101

REACTIONS (1)
  - BREAST CANCER [None]
